FAERS Safety Report 20506233 (Version 1)
Quarter: 2022Q1

REPORT INFORMATION
  Report Type: Spontaneous
  Country: US (occurrence: None)
  Receive Date: 20220222
  Receipt Date: 20220222
  Transmission Date: 20220424
  Serious: No
  Sender: FDA-Public Use
  Company Number: None

PATIENT
  Age: 14 Year
  Sex: Male
  Weight: 33.8 kg

DRUGS (1)
  1. EVUSHELD [Suspect]
     Active Substance: CILGAVIMAB\TIXAGEVIMAB
     Indication: Immunodeficiency
     Dosage: FREQUENCY : ONCE;?
     Route: 030
     Dates: start: 20220222, end: 20220222

REACTIONS (3)
  - Dose calculation error [None]
  - Product use issue [None]
  - Incorrect dose administered [None]

NARRATIVE: CASE EVENT DATE: 20220222
